FAERS Safety Report 7319415-7 (Version None)
Quarter: 2011Q1

REPORT INFORMATION
  Report Type: 
  Country: None (occurrence: None)
  Receive Date: 20110228
  Receipt Date: 20100315
  Transmission Date: 20110831
  Serious: No
  Sender: FDA-Public Use
  Company Number: A0850234A

PATIENT
  Age: 37 Year
  Sex: Female

DRUGS (2)
  1. LAMICTAL [Suspect]
     Indication: BIPOLAR DISORDER
     Dosage: 1TAB PER DAY
     Route: 048
     Dates: start: 20100305
  2. SEROQUEL [Concomitant]

REACTIONS (5)
  - RASH GENERALISED [None]
  - HEADACHE [None]
  - INSOMNIA [None]
  - BACK PAIN [None]
  - NAUSEA [None]
